FAERS Safety Report 23439602 (Version 1)
Quarter: 2024Q1

REPORT INFORMATION
  Report Type: Spontaneous
  Country: IN (occurrence: IN)
  Receive Date: 20240124
  Receipt Date: 20240124
  Transmission Date: 20240409
  Serious: Yes (Other)
  Sender: FDA-Public Use
  Company Number: IN-EPICPHARMA-IN-2024EPCLIT00101

PATIENT
  Age: 58 Year
  Sex: Male

DRUGS (1)
  1. OFLOXACIN [Suspect]
     Active Substance: OFLOXACIN
     Indication: Diarrhoea
     Route: 065

REACTIONS (2)
  - Pancytopenia [Recovered/Resolved]
  - Idiosyncratic drug reaction [Recovered/Resolved]
